FAERS Safety Report 10068607 (Version 2)
Quarter: 2014Q2

REPORT INFORMATION
  Report Type: Spontaneous
  Country: US (occurrence: US)
  Receive Date: 20140409
  Receipt Date: 20140623
  Transmission Date: 20141212
  Serious: Yes (Hospitalization)
  Sender: FDA-Public Use
  Company Number: US-GLAXOSMITHKLINE-A1067871A

PATIENT
  Age: 69 Year
  Sex: Female

DRUGS (15)
  1. ADVAIR [Suspect]
     Indication: PRODUCT USED FOR UNKNOWN INDICATION
     Dosage: 1PUFF TWICE PER DAY
     Route: 055
  2. LAMICTAL [Suspect]
     Indication: DEPRESSION
     Dosage: 200MG PER DAY
     Route: 048
  3. PAXIL [Suspect]
     Indication: PRODUCT USED FOR UNKNOWN INDICATION
     Route: 065
  4. CALCIUM [Concomitant]
  5. VITAMINS [Concomitant]
  6. VITAMIN C [Concomitant]
  7. FISH OIL [Concomitant]
  8. LATUDA [Concomitant]
  9. KLONOPIN [Concomitant]
  10. NORVASC [Concomitant]
  11. LIPITOR [Concomitant]
  12. SYNTHROID [Concomitant]
  13. BETA BLOCKER [Concomitant]
  14. AMLODIPINE [Concomitant]
  15. UNKNOWN MEDICATION [Concomitant]

REACTIONS (5)
  - Coronary artery bypass [Not Recovered/Not Resolved]
  - Cerebrovascular accident [Not Recovered/Not Resolved]
  - Chest pain [Not Recovered/Not Resolved]
  - Confusional state [Not Recovered/Not Resolved]
  - No adverse event [Unknown]
